FAERS Safety Report 25087196 (Version 4)
Quarter: 2025Q2

REPORT INFORMATION
  Report Type: Report from Study
  Country: US (occurrence: US)
  Receive Date: 20250318
  Receipt Date: 20250520
  Transmission Date: 20250716
  Serious: Yes (Death)
  Sender: ROCHE
  Company Number: US-ROCHE-10000233602

PATIENT
  Age: 68 Year
  Sex: Female
  Weight: 69.71 kg

DRUGS (12)
  1. HERCEPTIN [Suspect]
     Active Substance: TRASTUZUMAB
     Indication: Breast cancer female
     Route: 042
     Dates: start: 20240117
  2. HERCEPTIN [Suspect]
     Active Substance: TRASTUZUMAB
     Indication: Oestrogen receptor assay positive
  3. PERJETA [Suspect]
     Active Substance: PERTUZUMAB
     Indication: Oestrogen receptor assay positive
     Route: 042
     Dates: start: 20240117
  4. PERJETA [Suspect]
     Active Substance: PERTUZUMAB
     Indication: Breast cancer female
     Route: 042
     Dates: start: 20240117
  5. ACETAMINOPHEN [Concomitant]
     Active Substance: ACETAMINOPHEN
     Dosage: TAKE 1 TABLET BY MOUTH 2 TIMES A DAY AS NEEDED FOR MILD PAIN. - ORAL
     Route: 048
     Dates: start: 20240117
  6. AMLODIPINE [Concomitant]
     Active Substance: AMLODIPINE BESYLATE
     Dosage: TAKE 1 TABLET (2.5 MG) BY MOUTH DAILY. - ORAL
     Route: 048
     Dates: start: 20231206, end: 20231222
  7. AMLODIPINE [Concomitant]
     Active Substance: AMLODIPINE BESYLATE
     Dosage: TAKE 1 TABLET (5 MG) BY MOUTH DAILY. - ORAL
     Dates: start: 20231212, end: 20240121
  8. LIDOCAINE AND PRILOCAINE [Concomitant]
     Active Substance: LIDOCAINE\PRILOCAINE
     Route: 061
     Dates: start: 20231226
  9. LOPERAMIDE [Concomitant]
     Active Substance: LOPERAMIDE
     Dates: start: 20240117
  10. OMEGA-3 FATTY ACIDS [Concomitant]
     Active Substance: OMEGA-3 FATTY ACIDS
  11. ONDANSETRON [Concomitant]
     Active Substance: ONDANSETRON
     Dosage: TAKE 1 TABLET BY MOUTH EVERY 8 HOURS AS NEEDED FOR NAUSEA/VOMITING. - ORAL
     Dates: start: 20240117
  12. PROCHLORPERAZINE [Concomitant]
     Active Substance: PROCHLORPERAZINE
     Dates: start: 20240117

REACTIONS (3)
  - Acute respiratory failure [Fatal]
  - Off label use [Unknown]
  - Off label use [Unknown]

NARRATIVE: CASE EVENT DATE: 20241219
